FAERS Safety Report 24180379 (Version 1)
Quarter: 2024Q3

REPORT INFORMATION
  Report Type: Spontaneous
  Country: RU (occurrence: RU)
  Receive Date: 20240806
  Receipt Date: 20240806
  Transmission Date: 20241017
  Serious: Yes (Other)
  Sender: NOVARTIS
  Company Number: RU-002147023-NVSC2024RU158702

PATIENT
  Age: 10 Year
  Sex: Male

DRUGS (1)
  1. TRILEPTAL [Suspect]
     Active Substance: OXCARBAZEPINE
     Indication: Epilepsy
     Dosage: 300 MG, BID
     Route: 048
     Dates: start: 20240628, end: 20240708

REACTIONS (4)
  - Epilepsy [Not Recovered/Not Resolved]
  - Change in seizure presentation [Not Recovered/Not Resolved]
  - Regurgitation [Not Recovered/Not Resolved]
  - Vomiting [Not Recovered/Not Resolved]

NARRATIVE: CASE EVENT DATE: 20240628
